FAERS Safety Report 9500381 (Version 1)
Quarter: 2013Q3

REPORT INFORMATION
  Report Type: Spontaneous
  Country: US (occurrence: None)
  Receive Date: 20130904
  Receipt Date: 20130904
  Transmission Date: 20140515
  Serious: Yes (Life-Threatening)
  Sender: FDA-Public Use
  Company Number: None

PATIENT
  Age: 41 Day
  Sex: Male
  Weight: 61.24 kg

DRUGS (1)
  1. INDOMETHACIN [Suspect]
     Indication: GOUT
     Route: 048
     Dates: start: 20130820, end: 20130902

REACTIONS (3)
  - Syncope [None]
  - Fall [None]
  - Joint injury [None]
